FAERS Safety Report 8890623 (Version 1)
Quarter: 2012Q4

REPORT INFORMATION
  Report Type: 
  Country: IN (occurrence: IN)
  Receive Date: 20121106
  Receipt Date: 20121106
  Transmission Date: 20130627
  Serious: Yes (Hospitalization)
  Sender: FDA-Public Use
  Company Number: IN-WATSON-2012-18782

PATIENT
  Age: 33 Year
  Sex: Female

DRUGS (4)
  1. FLUOXETINE HYDROCHLORIDE (UNKNOWN) [Suspect]
     Indication: DEPRESSIVE SYMPTOM
     Dosage: 20 mg, daily
  2. ARIPIPRAZOLE [Suspect]
     Indication: PSYCHOTIC BEHAVIOUR
     Dosage: 10 - 30 mg over the first week of admission
     Route: 065
  3. ARIPIPRAZOLE [Suspect]
     Indication: SCHIZOAFFECTIVE DISORDER
  4. ARIPIPRAZOLE [Suspect]
     Indication: DEPRESSION

REACTIONS (4)
  - Potentiating drug interaction [Recovered/Resolved]
  - Dystonia [Recovered/Resolved]
  - Akathisia [Recovered/Resolved]
  - Parkinsonism [Recovered/Resolved]
